FAERS Safety Report 24849999 (Version 1)
Quarter: 2025Q1

REPORT INFORMATION
  Report Type: Spontaneous
  Country: CN (occurrence: CN)
  Receive Date: 20250116
  Receipt Date: 20250116
  Transmission Date: 20250409
  Serious: Yes (Life-Threatening, Hospitalization)
  Sender: BAYER HEALTHCARE PHARMACEUTICALS INC.
  Company Number: CN-BAYER-2025A006786

PATIENT
  Age: 83 Year
  Sex: Female
  Weight: 50 kg

DRUGS (5)
  1. GLUCOBAY [Interacting]
     Active Substance: ACARBOSE
     Indication: Vascular stenosis
     Dosage: 50 MG, TID
     Route: 048
     Dates: start: 20241201, end: 20250113
  2. REPAGLINIDE [Interacting]
     Active Substance: REPAGLINIDE
     Indication: Vascular stenosis
     Dosage: 1 MG, TID
     Route: 048
     Dates: start: 20241201, end: 20250113
  3. REPAGLINIDE [Interacting]
     Active Substance: REPAGLINIDE
     Indication: Diabetes mellitus
  4. METFORMIN HYDROCHLORIDE [Interacting]
     Active Substance: METFORMIN HYDROCHLORIDE
     Indication: Vascular stenosis
     Dosage: 0.5 G, BID
     Route: 048
     Dates: start: 20241201, end: 20250113
  5. METFORMIN HYDROCHLORIDE [Interacting]
     Active Substance: METFORMIN HYDROCHLORIDE
     Indication: Diabetes mellitus

REACTIONS (9)
  - Hypoglycaemic coma [Recovering/Resolving]
  - Altered state of consciousness [Recovering/Resolving]
  - Unresponsive to stimuli [Recovering/Resolving]
  - Blood glucose abnormal [None]
  - Decreased appetite [None]
  - Depressed mood [None]
  - Respiratory rate increased [None]
  - Asthenia [None]
  - Hypophagia [None]

NARRATIVE: CASE EVENT DATE: 20250109
